FAERS Safety Report 24186675 (Version 1)
Quarter: 2024Q3

REPORT INFORMATION
  Report Type: Report from Study
  Country: US (occurrence: None)
  Receive Date: 20240808
  Receipt Date: 20240808
  Transmission Date: 20241016
  Serious: Yes (Hospitalization, Other)
  Sender: ASTRAZENECA
  Company Number: 2023A196807

PATIENT
  Sex: Male

DRUGS (19)
  1. TAGRISSO [Suspect]
     Active Substance: OSIMERTINIB
     Indication: Lung carcinoma cell type unspecified stage 0
     Route: 048
  2. ALFUZOSIN [Concomitant]
     Active Substance: ALFUZOSIN
  3. BETHANECHOL [Concomitant]
     Active Substance: BETHANECHOL
  4. VITAMIN B COMPLEX [Concomitant]
     Active Substance: CYANOCOBALAMIN\DEXPANTHENOL\NIACINAMIDE\PYRIDOXINE HYDROCHLORIDE\RIBOFLAVIN 5^-PHOSPHATE SODIUM\THIA
  5. VITAMINS [Concomitant]
     Active Substance: VITAMINS
  6. NITROFURANTO [Concomitant]
  7. CIPRO [Concomitant]
     Active Substance: CIPROFLOXACIN HYDROCHLORIDE
  8. PEPTO-BISMOL [Concomitant]
     Active Substance: BISMUTH SUBSALICYLATE
     Dosage: 262MG/15
  9. PREDNISONE [Concomitant]
     Active Substance: PREDNISONE
  10. QVAR REDIHAL [Concomitant]
     Dosage: 80MCG/AC
  11. ALLEGRA AL [Concomitant]
  12. ATORVASTATIN [Concomitant]
     Active Substance: ATORVASTATIN
  13. DILTIAZEM [Concomitant]
     Active Substance: DILTIAZEM
  14. ELIQUIS [Concomitant]
     Active Substance: APIXABAN
  15. FISH OIL [Concomitant]
     Active Substance: FISH OIL
  16. FLECAINIDE A [Concomitant]
  17. HAIR SKIN NA [Concomitant]
  18. LUTEIN-ZEAXA [Concomitant]
     Dosage: 6-0.24MG
  19. VITAMIN C [Concomitant]
     Active Substance: ASCORBIC ACID

REACTIONS (2)
  - Colon cancer [Not Recovered/Not Resolved]
  - Urinary tract infection [Not Recovered/Not Resolved]
